FAERS Safety Report 9774714 (Version 1)
Quarter: 2013Q4

REPORT INFORMATION
  Report Type: Spontaneous
  Country: US (occurrence: US)
  Receive Date: 20131220
  Receipt Date: 20131220
  Transmission Date: 20140711
  Serious: No
  Sender: FDA-Public Use
  Company Number: US-PFIZER INC-2013364803

PATIENT
  Sex: 0

DRUGS (3)
  1. LYRICA [Suspect]
     Indication: NECK PAIN
     Dosage: UNK
  2. LYRICA [Suspect]
     Indication: MUSCULOSKELETAL PAIN
  3. LYRICA [Suspect]
     Indication: DIABETIC NEUROPATHY

REACTIONS (1)
  - Weight increased [Unknown]
